FAERS Safety Report 7326454-9 (Version None)
Quarter: 2011Q1

REPORT INFORMATION
  Report Type: 
  Country: None (occurrence: None)
  Receive Date: 20110223
  Receipt Date: 20110211
  Transmission Date: 20110831
  Serious: Yes (Death)
  Sender: FDA-Public Use
  Company Number: TPA2011A00582

PATIENT
  Age: 65 Year
  Sex: Male

DRUGS (1)
  1. ACTOS [Suspect]
     Dosage: 15 MG, 1 IN 1 D

REACTIONS (3)
  - PULMONARY OEDEMA [None]
  - HYPOXIC-ISCHAEMIC ENCEPHALOPATHY [None]
  - RESPIRATORY FAILURE [None]
